FAERS Safety Report 7933246-6 (Version None)
Quarter: 2011Q4

REPORT INFORMATION
  Report Type: 
  Country: None (occurrence: None)
  Receive Date: 20111121
  Receipt Date: 20111121
  Transmission Date: 20120403
  Serious: No
  Sender: FDA-Public Use
  Company Number: None

PATIENT
  Sex: Female

DRUGS (1)
  1. ORTHO TRI-CYCLEN [Suspect]
     Indication: CONTRACEPTION
     Dosage: 1 DAILY

REACTIONS (3)
  - GASTRIC HAEMORRHAGE [None]
  - ADNEXA UTERI PAIN [None]
  - ABDOMINAL PAIN UPPER [None]
